FAERS Safety Report 4594022-8 (Version None)
Quarter: 2005Q1

REPORT INFORMATION
  Report Type: 
  Country: None (occurrence: None)
  Receive Date: 20050301
  Receipt Date: 20041222
  Transmission Date: 20050727
  Serious: Yes (Life-Threatening, Disabling, Other)
  Sender: FDA-Public Use
  Company Number: US-MERCK-0412USA02746

PATIENT
  Age: 50 Year
  Sex: Female

DRUGS (5)
  1. VIOXX [Suspect]
     Indication: ARTHRITIS
     Route: 048
     Dates: start: 20000101, end: 20041101
  2. VIOXX [Suspect]
     Route: 048
     Dates: start: 20000701, end: 20041101
  3. VIOXX [Suspect]
     Indication: ARTHRALGIA
     Route: 048
     Dates: start: 20000101, end: 20041101
  4. VIOXX [Suspect]
     Route: 048
     Dates: start: 20000701, end: 20041101
  5. PLAQUENIL [Concomitant]
     Route: 065

REACTIONS (11)
  - ASTHENIA [None]
  - BRONCHITIS [None]
  - CARDIAC DISORDER [None]
  - CHEST PAIN [None]
  - CORONARY ARTERY OCCLUSION [None]
  - DIZZINESS [None]
  - FEELING ABNORMAL [None]
  - HYPOTHYROIDISM [None]
  - MALAISE [None]
  - PALLOR [None]
  - PNEUMONIA [None]
